FAERS Safety Report 7941516-0 (Version None)
Quarter: 2011Q4

REPORT INFORMATION
  Report Type: 
  Country: None (occurrence: None)
  Receive Date: 20111128
  Receipt Date: 20111116
  Transmission Date: 20120403
  Serious: Yes (Hospitalization, Other)
  Sender: FDA-Public Use
  Company Number: US-ASTELLAS-2011US006508

PATIENT
  Sex: Male
  Weight: 94 kg

DRUGS (5)
  1. PROGRAF [Suspect]
     Indication: PANCREAS TRANSPLANT
  2. MYCOPHENOLATE MOFETIL (CELLCEPT) [Concomitant]
     Indication: PRODUCT USED FOR UNKNOWN INDICATION
     Dosage: 250 MG, BID
     Route: 048
  3. CILASTATIN [Concomitant]
     Indication: PRODUCT USED FOR UNKNOWN INDICATION
     Dosage: 20 MG, UID/QD
     Route: 048
  4. LEVOCETIRIZINE DIHYDROCHLORIDE [Concomitant]
     Indication: PRODUCT USED FOR UNKNOWN INDICATION
     Dosage: 5 MG, UID/QD
     Route: 048
  5. PROGRAF [Suspect]
     Indication: RENAL TRANSPLANT
     Dosage: 5 MG, UID/QD
     Route: 048
     Dates: start: 20051015

REACTIONS (5)
  - OFF LABEL USE [None]
  - POST PROCEDURAL FISTULA [None]
  - HOSPITALISATION [None]
  - APPENDICECTOMY [None]
  - INTESTINAL OBSTRUCTION [None]
